FAERS Safety Report 14701067 (Version 1)
Quarter: 2018Q1

REPORT INFORMATION
  Report Type: Spontaneous
  Country: US (occurrence: US)
  Receive Date: 20180328
  Receipt Date: 20180328
  Transmission Date: 20180509
  Serious: Yes (Hospitalization)
  Sender: FDA-Public Use
  Company Number: None

PATIENT
  Age: 62 Year
  Sex: Male
  Weight: 74.39 kg

DRUGS (1)
  1. REGORAFENIB [Suspect]
     Active Substance: REGORAFENIB
     Indication: TRANSITIONAL CELL CANCER OF RENAL PELVIS AND URETER METASTATIC
     Dosage: 120 DAY
     Route: 048
     Dates: start: 20180130, end: 20180327

REACTIONS (3)
  - Back pain [None]
  - Abdominal pain [None]
  - Inflammation [None]

NARRATIVE: CASE EVENT DATE: 20180327
